FAERS Safety Report 18365026 (Version 41)
Quarter: 2025Q2

REPORT INFORMATION
  Report Type: Report from Study
  Country: US (occurrence: US)
  Receive Date: 20201009
  Receipt Date: 20250513
  Transmission Date: 20250717
  Serious: Yes (Other)
  Sender: TAKEDA
  Company Number: US-SHIRE-US202032584

PATIENT
  Sex: Female
  Weight: 57 kg

DRUGS (33)
  1. HUMAN IMMUNOGLOBULIN G [Suspect]
     Active Substance: HUMAN IMMUNOGLOBULIN G
     Indication: Immunodeficiency common variable
     Dosage: 6 GRAM, 1/WEEK
     Dates: start: 20130218
  2. HUMAN IMMUNOGLOBULIN G [Suspect]
     Active Substance: HUMAN IMMUNOGLOBULIN G
     Indication: Primary immunodeficiency syndrome
     Dosage: 6 GRAM, 1/WEEK
     Dates: start: 20131119
  3. HUMAN IMMUNOGLOBULIN G [Suspect]
     Active Substance: HUMAN IMMUNOGLOBULIN G
     Dosage: 6 GRAM, 1/WEEK
     Dates: start: 20131121
  4. HUMAN IMMUNOGLOBULIN G [Suspect]
     Active Substance: HUMAN IMMUNOGLOBULIN G
     Dosage: 6 GRAM, 1/WEEK
     Dates: start: 20191210
  5. HUMAN IMMUNOGLOBULIN G [Suspect]
     Active Substance: HUMAN IMMUNOGLOBULIN G
     Dosage: 6 GRAM, 1/WEEK
  6. TIZANIDINE [Suspect]
     Active Substance: TIZANIDINE
     Indication: Product used for unknown indication
  7. ACETYLCYSTEINE [Concomitant]
     Active Substance: ACETYLCYSTEINE
  8. ACETAMINOPHEN [Concomitant]
     Active Substance: ACETAMINOPHEN
  9. VITAMIN C [Concomitant]
     Active Substance: ASCORBIC ACID
  10. Omega [Concomitant]
  11. ALBUTEROL SULFATE [Concomitant]
     Active Substance: ALBUTEROL SULFATE
  12. FIORICET [Concomitant]
     Active Substance: ACETAMINOPHEN\BUTALBITAL\CAFFEINE
  13. LEVOTHYROXINE [Concomitant]
     Active Substance: LEVOTHYROXINE
  14. MILK OF MAGNESIA [Concomitant]
     Active Substance: MAGNESIUM HYDROXIDE
  15. DILTIAZEM HYDROCHLORIDE [Concomitant]
     Active Substance: DILTIAZEM HYDROCHLORIDE
  16. CLARITHROMYCIN [Concomitant]
     Active Substance: CLARITHROMYCIN
     Dosage: 500 MILLIGRAM, BID
  17. SODIUM CHLORIDE [Concomitant]
     Active Substance: SODIUM CHLORIDE
  18. FLUCONAZOLE [Concomitant]
     Active Substance: FLUCONAZOLE
  19. ZINC [Concomitant]
     Active Substance: ZINC
  20. Lmx [Concomitant]
  21. FAMOTIDINE [Concomitant]
     Active Substance: FAMOTIDINE
  22. CIPROFLOXACIN HYDROCHLORIDE [Concomitant]
     Active Substance: CIPROFLOXACIN HYDROCHLORIDE
  23. DIPHENHYDRAMINE [Concomitant]
     Active Substance: DIPHENHYDRAMINE
  24. ALBUTEROL [Concomitant]
     Active Substance: ALBUTEROL
  25. EPINEPHRINE [Concomitant]
     Active Substance: EPINEPHRINE
  26. VITAMIN D3 [Concomitant]
     Active Substance: CHOLECALCIFEROL
  27. DILTIAZEM [Concomitant]
     Active Substance: DILTIAZEM
  28. CIPRO [Concomitant]
     Active Substance: CIPROFLOXACIN HYDROCHLORIDE
  29. DIAZEPAM [Concomitant]
     Active Substance: DIAZEPAM
  30. FISH OIL [Concomitant]
     Active Substance: FISH OIL
  31. LEVOTHYROXINE SODIUM [Concomitant]
     Active Substance: LEVOTHYROXINE SODIUM
  32. DIPHENHYDRAMINE HYDROCHLORIDE [Concomitant]
     Active Substance: DIPHENHYDRAMINE HYDROCHLORIDE
  33. Heartburn relief [Concomitant]

REACTIONS (62)
  - Lower respiratory tract infection [Unknown]
  - Venous injury [Unknown]
  - Pneumonia [Not Recovered/Not Resolved]
  - Autoimmune disorder [Unknown]
  - Product dose omission issue [Unknown]
  - Migraine [Unknown]
  - Hand fracture [Unknown]
  - Stress [Unknown]
  - Intervertebral disc compression [Unknown]
  - Intervertebral disc protrusion [Unknown]
  - Illness [Unknown]
  - Haemoptysis [Not Recovered/Not Resolved]
  - Joint swelling [Unknown]
  - Peripheral swelling [Unknown]
  - Scar [Unknown]
  - Lung disorder [Unknown]
  - Infection [Not Recovered/Not Resolved]
  - Somnambulism [Unknown]
  - Oropharyngeal discomfort [Unknown]
  - COVID-19 [Not Recovered/Not Resolved]
  - Injection site haemorrhage [Unknown]
  - Bronchial disorder [Unknown]
  - Death of relative [Unknown]
  - Insurance issue [Unknown]
  - Traumatic lung injury [Unknown]
  - Injection site bruising [Unknown]
  - Tendonitis [Unknown]
  - Gait disturbance [Unknown]
  - Drug hypersensitivity [Unknown]
  - Limb injury [Unknown]
  - Wound complication [Unknown]
  - Weight decreased [Unknown]
  - Nasopharyngitis [Unknown]
  - Pelvic bone injury [Unknown]
  - Respiratory tract infection [Unknown]
  - Back injury [Unknown]
  - Haemorrhage [Unknown]
  - Pharyngitis [Unknown]
  - Product use issue [Unknown]
  - Thyroid disorder [Unknown]
  - Infusion site haemorrhage [Unknown]
  - Infusion site bruising [Unknown]
  - Infusion site reaction [Unknown]
  - Insomnia [Unknown]
  - Night sweats [Unknown]
  - Contusion [Unknown]
  - Eye pain [Unknown]
  - Malaise [Unknown]
  - Dyspnoea [Unknown]
  - Arthralgia [Not Recovered/Not Resolved]
  - Chest discomfort [Unknown]
  - Back pain [Unknown]
  - Influenza like illness [Unknown]
  - Pyrexia [Unknown]
  - Fatigue [Unknown]
  - Chills [Unknown]
  - Dizziness [Unknown]
  - Infusion site pain [Unknown]
  - Headache [Not Recovered/Not Resolved]
  - Nausea [Unknown]
  - Pharyngitis streptococcal [Unknown]
  - Upper respiratory tract infection [Unknown]
